FAERS Safety Report 8247304-2 (Version None)
Quarter: 2012Q1

REPORT INFORMATION
  Report Type: 
  Country: None (occurrence: None)
  Receive Date: 20120316
  Receipt Date: 20091214
  Transmission Date: 20120608
  Serious: Yes (Other)
  Sender: FDA-Public Use
  Company Number: PHHY2009US55965

PATIENT
  Sex: Male

DRUGS (2)
  1. STERIOD NOS (NO INGREDIENTS/SUBSTANCES) [Concomitant]
  2. TEKTURNA [Suspect]
     Dosage: 150 MG

REACTIONS (3)
  - SWELLING FACE [None]
  - URTICARIA [None]
  - OEDEMA PERIPHERAL [None]
